FAERS Safety Report 5149208-0 (Version None)
Quarter: 2006Q4

REPORT INFORMATION
  Report Type: 
  Country: None (occurrence: None)
  Receive Date: 20061113
  Receipt Date: 20060914
  Transmission Date: 20070319
  Serious: No
  Sender: FDA-Public Use
  Company Number: US-GLAXOSMITHKLINE-A0620190A

PATIENT
  Age: 53 Year
  Sex: Female

DRUGS (5)
  1. COREG [Suspect]
     Dosage: 9.375MG TWICE PER DAY
     Route: 048
  2. CARDIZEM CD [Suspect]
     Dosage: 120MG PER DAY
     Dates: start: 19950101
  3. RANITIDINE [Concomitant]
  4. COUMADIN [Concomitant]
  5. CALCIUM [Concomitant]

REACTIONS (2)
  - ABDOMINAL PAIN UPPER [None]
  - CHEST DISCOMFORT [None]
